FAERS Safety Report 4869106-7 (Version None)
Quarter: 2005Q4

REPORT INFORMATION
  Report Type: 
  Country: None (occurrence: None)
  Receive Date: 20051230
  Receipt Date: 20051219
  Transmission Date: 20060501
  Serious: Yes (Death, Hospitalization)
  Sender: FDA-Public Use
  Company Number: US-JNJFOC-20050701980

PATIENT
  Sex: Female
  Weight: 114.76 kg

DRUGS (29)
  1. REMICADE [Suspect]
     Route: 042
  2. REMICADE [Suspect]
     Route: 042
  3. REMICADE [Suspect]
     Route: 042
  4. REMICADE [Suspect]
     Route: 042
  5. REMICADE [Suspect]
     Route: 042
  6. REMICADE [Suspect]
     Route: 042
  7. REMICADE [Suspect]
     Route: 042
  8. REMICADE [Suspect]
     Indication: RHEUMATOID ARTHRITIS
     Route: 042
  9. METHOTREXATE [Suspect]
     Indication: RHEUMATOID ARTHRITIS
  10. METHADONE [Suspect]
     Indication: DRUG USE FOR UNKNOWN INDICATION
  11. PROZAC [Suspect]
     Indication: DRUG USE FOR UNKNOWN INDICATION
  12. AMITRIPTYLINE [Suspect]
     Indication: DRUG USE FOR UNKNOWN INDICATION
  13. CODEINE [Suspect]
     Indication: DRUG USE FOR UNKNOWN INDICATION
  14. REMERON [Suspect]
     Indication: DRUG USE FOR UNKNOWN INDICATION
  15. TYLENOL [Concomitant]
     Indication: PREMEDICATION
  16. CLARINEX [Concomitant]
     Indication: PREMEDICATION
  17. ZYRTEC [Concomitant]
     Indication: PREMEDICATION
  18. ATIVAN [Concomitant]
     Dosage: AS NECESSARY
  19. RESTORIL [Concomitant]
     Dosage: AT NIGHT
  20. SEREVENT [Concomitant]
     Dosage: 2 PUFFS
  21. ALBUTEROL [Concomitant]
  22. ACCOLATE [Concomitant]
  23. FLOVENT [Concomitant]
  24. FOLIC ACID [Concomitant]
  25. ARTHROTEC [Concomitant]
  26. ARTHROTEC [Concomitant]
     Dosage: 75/200
  27. SOLU-MEDROL [Concomitant]
  28. RANITIDINE [Concomitant]
  29. LEUCOVORIN CALCIUM [Concomitant]

REACTIONS (21)
  - ALOPECIA [None]
  - ARTHRITIS [None]
  - ASTHMA [None]
  - BALANCE DISORDER [None]
  - BRONCHITIS [None]
  - CHEST PAIN [None]
  - CHRONIC OBSTRUCTIVE PULMONARY DISEASE [None]
  - DIZZINESS [None]
  - DRUG TOXICITY [None]
  - DYSARTHRIA [None]
  - GASTROENTERITIS [None]
  - HEPATIC FAILURE [None]
  - INFECTION [None]
  - INFUSION RELATED REACTION [None]
  - INSOMNIA [None]
  - MIGRAINE [None]
  - NAUSEA [None]
  - PAIN [None]
  - PYREXIA [None]
  - THERAPEUTIC RESPONSE DECREASED [None]
  - VOMITING [None]
